FAERS Safety Report 24344767 (Version 8)
Quarter: 2025Q2

REPORT INFORMATION
  Report Type: Spontaneous
  Country: US (occurrence: US)
  Receive Date: 20240920
  Receipt Date: 20250519
  Transmission Date: 20250716
  Serious: Yes (Life-Threatening, Other)
  Sender: PFIZER
  Company Number: US-PFIZER INC-PV202400121872

PATIENT
  Age: 45 Year
  Sex: Male
  Weight: 94.347 kg

DRUGS (23)
  1. NURTEC ODT [Suspect]
     Active Substance: RIMEGEPANT SULFATE
     Indication: Migraine
     Dates: start: 20220317
  2. NURTEC ODT [Suspect]
     Active Substance: RIMEGEPANT SULFATE
     Dosage: 75 MG, 1X/DAY
  3. GABAPENTIN [Suspect]
     Active Substance: GABAPENTIN
     Indication: Nerve injury
     Dosage: 300 MG, 1X/DAY
  4. OXYCODONE [Suspect]
     Active Substance: OXYCODONE
  5. TRAMADOL [Suspect]
     Active Substance: TRAMADOL
  6. AMLODIPINE + BENAZEPRIL HCL [Concomitant]
     Dosage: 1 DF, DAILY(10-40 MG)
     Route: 048
     Dates: start: 20220317
  7. ASPIRIN [Concomitant]
     Active Substance: ASPIRIN
     Dosage: 81 MG, DAILY
     Dates: start: 20220317
  8. ATORVASTATIN [Concomitant]
     Active Substance: ATORVASTATIN
     Dosage: 20MG TABLET 1 TABLET DAILY
     Dates: start: 20220223
  9. ATORVASTATIN [Concomitant]
     Active Substance: ATORVASTATIN
     Dosage: 20 MG, DAILY
     Dates: start: 20220317
  10. BACLOFEN [Concomitant]
     Active Substance: BACLOFEN
     Dosage: 20 MG, DAILY
     Dates: start: 20220317
  11. BACLOFEN [Concomitant]
     Active Substance: BACLOFEN
     Dosage: TAKE 1 TO 2 TABLETS BY MOUTH EVERY NIGHT AT BEDTIME
     Route: 048
  12. ESCITALOPRAM [Concomitant]
     Active Substance: ESCITALOPRAM OXALATE
     Dosage: 10 MG, DAILY
     Dates: start: 20220317
  13. MAGNESIUM [Concomitant]
     Active Substance: MAGNESIUM
     Dosage: 400 MG, DAILY
     Dates: start: 20220317
  14. VITAMIN D3 [Concomitant]
     Active Substance: CHOLECALCIFEROL
     Dosage: 50MCG (2000UNIT) TABLET 1 TABLET DAILY
     Dates: start: 20220318
  15. FISH OIL [Concomitant]
     Active Substance: FISH OIL
     Dosage: 1000 MG, 2X/DAY
  16. FISH OIL [Concomitant]
     Active Substance: FISH OIL
     Dosage: 250-500-1000
  17. LEVOMEFOLATE CALCIUM [Concomitant]
     Active Substance: LEVOMEFOLATE CALCIUM
     Dosage: 1 TABLET DAILY
  18. OLMESARTAN [Concomitant]
     Active Substance: OLMESARTAN
     Dosage: 20 MG, DAILY
     Route: 048
  19. KENALOG [Concomitant]
     Active Substance: TRIAMCINOLONE ACETONIDE
  20. LIDOCAINE [Concomitant]
     Active Substance: LIDOCAINE
  21. MARCAINE [Concomitant]
     Active Substance: BUPIVACAINE HYDROCHLORIDE
  22. OMNIPAQUE [Concomitant]
     Active Substance: IOHEXOL
  23. SODIUM CHLORIDE [Concomitant]
     Active Substance: SODIUM CHLORIDE

REACTIONS (9)
  - Dyspnoea [Unknown]
  - Hypothalamo-pituitary disorder [Unknown]
  - Anion gap decreased [Unknown]
  - Blood calcium decreased [Unknown]
  - Blood glucose increased [Unknown]
  - Blood thyroid stimulating hormone decreased [Unknown]
  - Oxygen saturation decreased [Unknown]
  - Lymphocyte percentage increased [Unknown]
  - Neutrophil percentage decreased [Unknown]

NARRATIVE: CASE EVENT DATE: 20240617
